FAERS Safety Report 4825262-8 (Version None)
Quarter: 2005Q4

REPORT INFORMATION
  Report Type: 
  Country: None (occurrence: None)
  Receive Date: 20051109
  Receipt Date: 20051101
  Transmission Date: 20060501
  Serious: Yes (Death, Life-Threatening, Hospitalization)
  Sender: FDA-Public Use
  Company Number: DE-2005-019311

PATIENT
  Age: 75 Year
  Sex: Male

DRUGS (1)
  1. MAGNEVIST [Suspect]
     Dosage: 25 ML, 1 DOSE, INTRAVENOUS
     Route: 042
     Dates: start: 20050916, end: 20050916

REACTIONS (12)
  - ANAPHYLACTIC SHOCK [None]
  - BRAIN OEDEMA [None]
  - CARDIAC ARREST [None]
  - CARDIOVASCULAR DISORDER [None]
  - COMA [None]
  - FALL [None]
  - HAEMOPNEUMOTHORAX [None]
  - HYPOXIC ENCEPHALOPATHY [None]
  - MULTI-ORGAN FAILURE [None]
  - OEDEMA PERIPHERAL [None]
  - PULMONARY CONGESTION [None]
  - RIB FRACTURE [None]
